FAERS Safety Report 20421974 (Version 1)
Quarter: 2022Q1

REPORT INFORMATION
  Report Type: Spontaneous
  Country: FR (occurrence: FR)
  Receive Date: 20220203
  Receipt Date: 20220203
  Transmission Date: 20220423
  Serious: Yes (Other)
  Sender: FDA-Public Use
  Company Number: None

PATIENT
  Age: 30 Year
  Sex: Female
  Weight: 65 kg

DRUGS (3)
  1. MODAFINIL [Suspect]
     Active Substance: MODAFINIL
     Dosage: 1000 MILLIGRAM DAILY; 10 TABLETS OF 100MG PER DAY
     Route: 048
  2. CANNABIS SATIVA SUBSP. INDICA TOP [Suspect]
     Active Substance: CANNABIS SATIVA SUBSP. INDICA TOP
     Dosage: 10 DOSAGE FORMS DAILY; 10 JOINTS PER DAY
     Route: 065
     Dates: start: 2010
  3. COCAINE [Suspect]
     Active Substance: COCAINE
     Dosage: 1 TO 2 GRAMS PER DAY
     Route: 045

REACTIONS (2)
  - Drug dependence [Unknown]
  - Oculogyric crisis [Recovered/Resolved]

NARRATIVE: CASE EVENT DATE: 20100101
